FAERS Safety Report 5317379-9 (Version None)
Quarter: 2007Q2

REPORT INFORMATION
  Report Type: 
  Country: None (occurrence: None)
  Receive Date: 20070504
  Receipt Date: 20070425
  Transmission Date: 20071010
  Serious: Yes (Disabling, Other)
  Sender: FDA-Public Use
  Company Number: JP-MERCK-0703USA04317

PATIENT
  Age: 75 Year
  Sex: Female
  Weight: 45 kg

DRUGS (4)
  1. TRUSOPT [Suspect]
     Indication: GLAUCOMA
     Route: 047
     Dates: start: 19980101, end: 20000831
  2. SANPILO [Suspect]
     Indication: GLAUCOMA
     Route: 047
     Dates: start: 19980101, end: 20000831
  3. RESCULA [Suspect]
     Indication: GLAUCOMA
     Route: 047
     Dates: start: 19980101, end: 20000831
  4. BETOPTIC [Suspect]
     Indication: GLAUCOMA
     Route: 047
     Dates: start: 19980101, end: 20000831

REACTIONS (2)
  - CONJUNCTIVAL DISORDER [None]
  - PUNCTATE KERATITIS [None]
